FAERS Safety Report 13870614 (Version 1)
Quarter: 2017Q3

REPORT INFORMATION
  Report Type: Spontaneous
  Country: BR (occurrence: BR)
  Receive Date: 20170816
  Receipt Date: 20170816
  Transmission Date: 20171127
  Serious: Yes (Hospitalization, Other)
  Sender: FDA-Public Use
  Company Number: PHHY2017BR111327

PATIENT
  Sex: Male
  Weight: 10.4 kg

DRUGS (1)
  1. AMOXICILLIN+CLAVULANATE [Suspect]
     Active Substance: AMOXICILLIN\CLAVULANATE POTASSIUM
     Indication: TONSILLITIS
     Dosage: 2.5 MG, TID (EVERY 8 HOURS)
     Route: 048

REACTIONS (5)
  - Oedema [Recovered/Resolved]
  - Peripheral swelling [Recovered/Resolved]
  - Pyrexia [Recovered/Resolved]
  - Pigmentation disorder [Recovered/Resolved]
  - Hypersensitivity [Recovered/Resolved]
